FAERS Safety Report 5729604-0 (Version None)
Quarter: 2008Q2

REPORT INFORMATION
  Report Type: 
  Country: None (occurrence: None)
  Receive Date: 20080506
  Receipt Date: 20080501
  Transmission Date: 20081010
  Serious: Yes (Hospitalization, Disabling)
  Sender: FDA-Public Use
  Company Number: US-MERCK-0705USA02834

PATIENT
  Age: 56 Year
  Sex: Male

DRUGS (1)
  1. FOSAMAX [Suspect]
     Indication: OSTEOPOROSIS
     Route: 048

REACTIONS (14)
  - ANXIETY [None]
  - ARTHRALGIA [None]
  - BILIARY CIRRHOSIS PRIMARY [None]
  - BLOOD CHOLESTEROL INCREASED [None]
  - DEPRESSION [None]
  - HYPERTENSION [None]
  - LIVER DISORDER [None]
  - MOVEMENT DISORDER [None]
  - ORAL INFECTION [None]
  - PANIC ATTACK [None]
  - PERSONALITY CHANGE [None]
  - PLATELET COUNT DECREASED [None]
  - RHEUMATOID ARTHRITIS [None]
  - TOOTH LOSS [None]
